FAERS Safety Report 5837885-8 (Version None)
Quarter: 2008Q3

REPORT INFORMATION
  Report Type: 
  Country: None (occurrence: None)
  Receive Date: 20080808
  Receipt Date: 20080616
  Transmission Date: 20090109
  Serious: No
  Sender: FDA-Public Use
  Company Number: A0729455A

PATIENT
  Age: 54 Year
  Sex: Female

DRUGS (10)
  1. PAXIL CR [Suspect]
     Indication: DRUG USE FOR UNKNOWN INDICATION
     Dosage: 12.5MG PER DAY
     Route: 048
     Dates: start: 20080515
  2. EMEND [Concomitant]
  3. DECADRON [Concomitant]
  4. CRESTOR [Concomitant]
  5. GLIPIZIDE [Concomitant]
  6. METFORMIN HCL [Concomitant]
  7. AVANDIA [Concomitant]
  8. PEPCID [Concomitant]
  9. LORAZEPAM [Concomitant]
  10. CHEMOTHERAPY [Concomitant]

REACTIONS (3)
  - DISTURBANCE IN ATTENTION [None]
  - SINUSITIS [None]
  - TINNITUS [None]
